FAERS Safety Report 5353862-8 (Version None)
Quarter: 2007Q2

REPORT INFORMATION
  Report Type: 
  Country: None (occurrence: None)
  Receive Date: 20070612
  Receipt Date: 20070608
  Transmission Date: 20071010
  Serious: Yes (Hospitalization, Other)
  Sender: FDA-Public Use
  Company Number: US-GILEAD-2007-0012138

PATIENT
  Sex: Male
  Weight: 72.64 kg

DRUGS (4)
  1. ATRIPLA [Suspect]
     Route: 048
     Dates: start: 20070423, end: 20070504
  2. PAXIL [Concomitant]
     Indication: ANXIETY
     Route: 048
  3. WELLBUTRIN [Concomitant]
     Indication: DEPRESSION
     Route: 048
  4. VALTREX [Concomitant]
     Indication: HERPES VIRUS INFECTION
     Route: 048

REACTIONS (3)
  - DYSPNOEA [None]
  - PHARYNGEAL OEDEMA [None]
  - STEVENS-JOHNSON SYNDROME [None]
